FAERS Safety Report 17125133 (Version 1)
Quarter: 2019Q4

REPORT INFORMATION
  Report Type: Spontaneous
  Country: None (occurrence: CA)
  Receive Date: 20191206
  Receipt Date: 20191206
  Transmission Date: 20200122
  Serious: Yes (Hospitalization, Other)
  Sender: FDA-Public Use
  Company Number: CA-B.BRAUN MEDICAL INC.-2077575

PATIENT
  Sex: Male

DRUGS (2)
  1. SODIUM CHLORIDE INJECTION USP 0264-7800-09 [Suspect]
     Active Substance: SODIUM CHLORIDE
     Indication: HAEMODIALYSIS
     Route: 042
  2. ACID CONCENTRATE D [Suspect]
     Active Substance: ACETIC ACID\CALCIUM CHLORIDE\DEXTROSE\MAGNESIUM CHLORIDE\POTASSIUM CHLORIDE\SODIUM CHLORIDE

REACTIONS (1)
  - Dyspnoea [Unknown]
